FAERS Safety Report 5947420-1 (Version None)
Quarter: 2008Q4

REPORT INFORMATION
  Report Type: 
  Country: None (occurrence: None)
  Receive Date: 20081110
  Receipt Date: 20081029
  Transmission Date: 20090506
  Serious: Yes (Hospitalization)
  Sender: FDA-Public Use
  Company Number: GB-PFIZER INC-2008092216

PATIENT
  Age: 71 Year
  Sex: Female

DRUGS (12)
  1. GABAPENTIN [Suspect]
     Indication: BURNING SENSATION
     Route: 048
     Dates: start: 20070202, end: 20070206
  2. ASPIRIN [Concomitant]
  3. BISOPROLOL FUMARATE [Concomitant]
  4. CANDESARTAN CILEXETIL [Concomitant]
  5. ACETAMINOPHEN W/ PROPOXYPHENE HCL [Concomitant]
  6. FRUSEMIDE [Concomitant]
  7. FYBOGEL [Concomitant]
  8. NITROGLYCERIN [Concomitant]
  9. IBUPROFEN TABLETS [Concomitant]
  10. SPIRONOLACTONE [Concomitant]
  11. THYROID TAB [Concomitant]
  12. VENLAFAXINE HCL [Concomitant]

REACTIONS (2)
  - DYSKINESIA [None]
  - RENAL FAILURE ACUTE [None]
